FAERS Safety Report 5102443-X (Version None)
Quarter: 2006Q3

REPORT INFORMATION
  Report Type: 
  Country: None (occurrence: None)
  Receive Date: 20060908
  Receipt Date: 20060724
  Transmission Date: 20061208
  Serious: Yes (Death)
  Sender: FDA-Public Use
  Company Number: US200604002310

PATIENT
  Age: 67 Year
  Sex: Female
  Weight: 28.1 kg

DRUGS (4)
  1. ZYPREXA [Suspect]
     Indication: BIPOLAR DISORDER
     Dosage: SEE IMAGE
     Dates: end: 20040101
  2. ZYPREXA [Suspect]
     Indication: BIPOLAR DISORDER
     Dosage: SEE IMAGE
     Dates: start: 20030401
  3. LITHIUM CARBONATE [Concomitant]
  4. PREDNISONE [Concomitant]

REACTIONS (1)
  - DIABETES MELLITUS [None]
